FAERS Safety Report 5238458-0 (Version None)
Quarter: 2007Q1

REPORT INFORMATION
  Report Type: 
  Country: None (occurrence: None)
  Receive Date: 20070215
  Receipt Date: 20070131
  Transmission Date: 20070707
  Serious: Yes (Other)
  Sender: FDA-Public Use
  Company Number: BE-MERCK-0612BEL00030

PATIENT
  Age: 42 Year
  Sex: Male
  Weight: 85 kg

DRUGS (18)
  1. ZETIA [Suspect]
     Indication: HYPERCHOLESTEROLAEMIA
     Route: 048
     Dates: start: 20060925, end: 20061019
  2. ZETIA [Suspect]
     Route: 048
     Dates: start: 20061031
  3. EVEROLIMUS [Suspect]
     Indication: RENAL TRANSPLANT
     Route: 048
     Dates: start: 20060710, end: 20061008
  4. EVEROLIMUS [Suspect]
     Route: 048
     Dates: start: 20061009, end: 20061015
  5. EVEROLIMUS [Suspect]
     Route: 048
     Dates: start: 20061016, end: 20061025
  6. EVEROLIMUS [Suspect]
     Route: 048
     Dates: start: 20061026, end: 20061030
  7. EVEROLIMUS [Suspect]
     Route: 048
     Dates: start: 20061031, end: 20061105
  8. EVEROLIMUS [Suspect]
     Route: 048
     Dates: start: 20061106, end: 20061108
  9. EVEROLIMUS [Suspect]
     Route: 048
     Dates: start: 20061109
  10. CYCLOSPORINE [Concomitant]
     Indication: IMMUNOSUPPRESSION
     Route: 047
     Dates: end: 20061113
  11. METHYLPREDNISOLONE [Concomitant]
     Indication: IMMUNOSUPPRESSION
     Route: 048
  12. SULFAMETHOXAZOLE AND TRIMETHOPRIM [Concomitant]
     Indication: PROPHYLAXIS
     Route: 048
  13. METOPROLOL TARTRATE [Concomitant]
     Route: 048
  14. DIHYDRALAZINE MESYLATE [Concomitant]
     Route: 048
  15. IRBESARTAN [Concomitant]
     Route: 048
  16. AMLODIPINE BESYLATE [Concomitant]
     Route: 048
  17. CALCIUM CARBONATE [Concomitant]
     Indication: DIABETES MELLITUS
     Route: 048
  18. SODIUM CARBONATE [Concomitant]
     Route: 048

REACTIONS (3)
  - DRUG INTERACTION [None]
  - IMMUNOSUPPRESSANT DRUG LEVEL DECREASED [None]
  - INAPPROPRIATE SCHEDULE OF DRUG ADMINISTRATION [None]
